FAERS Safety Report 7681543-4 (Version None)
Quarter: 2011Q3

REPORT INFORMATION
  Report Type: 
  Country: None (occurrence: None)
  Receive Date: 20110812
  Receipt Date: 20110804
  Transmission Date: 20111222
  Serious: Yes (Other)
  Sender: FDA-Public Use
  Company Number: PHHY2011US67145

PATIENT
  Sex: Female

DRUGS (1)
  1. EXJADE [Suspect]
     Dosage: 1250 MG, QD
     Route: 048
     Dates: start: 20110618

REACTIONS (8)
  - DIARRHOEA [None]
  - TOXICITY TO VARIOUS AGENTS [None]
  - CHROMATURIA [None]
  - MALAISE [None]
  - EPISTAXIS [None]
  - NAUSEA [None]
  - HYPOPHAGIA [None]
  - HEPATIC ENZYME INCREASED [None]
